FAERS Safety Report 9999312 (Version 2)
Quarter: 2014Q2

REPORT INFORMATION
  Report Type: Spontaneous
  Country: FR (occurrence: None)
  Receive Date: 20140310
  Receipt Date: 20140618
  Transmission Date: 20141212
  Serious: Yes (Hospitalization)
  Sender: FDA-Public Use
  Company Number: 2212920

PATIENT
  Age: 80 Year
  Sex: Female
  Weight: 58.8 kg

DRUGS (5)
  1. PENTOSTATIN [Suspect]
     Indication: PROLYMPHOCYTIC LEUKAEMIA
     Route: 041
     Dates: start: 20131120, end: 20131120
  2. CAMPATH [Suspect]
     Indication: PROLYMPHOCYTIC LEUKAEMIA
     Dosage: (3 WEEK)
     Route: 041
     Dates: start: 20131205, end: 20140106
  3. BACTRIM [Concomitant]
  4. ZELITREX [Concomitant]
  5. ROVALCYTE [Concomitant]

REACTIONS (6)
  - Cytomegalovirus infection [None]
  - Pneumonia cytomegaloviral [None]
  - Bronchopulmonary aspergillosis [None]
  - Hepatocellular injury [None]
  - Cholestasis [None]
  - Systemic inflammatory response syndrome [None]
